FAERS Safety Report 9257307 (Version 1)
Quarter: 2013Q1

REPORT INFORMATION
  Report Type: Spontaneous
  Country: US (occurrence: None)
  Receive Date: 20121212
  Receipt Date: 20121212
  Transmission Date: 20140127
  Serious: No
  Sender: FDA-Public Use
  Company Number: 1210USA002803

PATIENT
  Age: 60 Year
  Sex: Male

DRUGS (1)
  1. VICTRELIS (BOCEPREVIR) CAPSULE, 200 MG [Suspect]
     Indication: CHRONIC HEPATITIS C
     Route: 048

REACTIONS (4)
  - Hyperhidrosis [None]
  - Pain [None]
  - Influenza like illness [None]
  - Nausea [None]
